FAERS Safety Report 12877065 (Version 2)
Quarter: 2016Q4

REPORT INFORMATION
  Report Type: Report from Study
  Country: KR (occurrence: KR)
  Receive Date: 20161024
  Receipt Date: 20161104
  Transmission Date: 20170207
  Serious: Yes (Hospitalization)
  Sender: FDA-Public Use
  Company Number: KR-PFIZER INC-2016482578

PATIENT
  Age: 69 Year
  Sex: Female
  Weight: 51.8 kg

DRUGS (13)
  1. SALINE /00075401/ [Concomitant]
     Active Substance: SODIUM CHLORIDE
     Indication: SUPPLEMENTATION THERAPY
     Dosage: 1 BAG, 1X/DAY
     Route: 042
     Dates: start: 20161013, end: 20161013
  2. GASMOTIN [Concomitant]
     Active Substance: MOSAPRIDE CITRATE
     Indication: DYSPEPSIA
     Dosage: 3 DF, 3X/DAY
     Route: 048
     Dates: start: 20161013, end: 20161016
  3. ZIPAN /00599202/ [Concomitant]
     Indication: ANALGESIC THERAPY
     Dosage: 1 AMPLE, 1X/DAY
     Route: 042
     Dates: start: 20161013, end: 20161013
  4. TRAJENTA DUO [Concomitant]
     Active Substance: LINAGLIPTIN\METFORMIN HYDROCHLORIDE
     Indication: DIABETES MELLITUS
     Dosage: UNK
     Dates: start: 2005
  5. ZALTRON [Concomitant]
     Indication: ANALGESIC THERAPY
     Dosage: 3 DF, 3X/DAY
     Route: 048
     Dates: start: 20161013, end: 20161016
  6. VIVIANT [Concomitant]
     Active Substance: BAZEDOXIFENE
     Dosage: UNK
     Dates: start: 2012
  7. LACIDOFIL [Concomitant]
     Active Substance: LACTOBACILLUS ACIDOPHILUS\LACTOBACILLUS RHAMNOSUS
     Indication: DYSPEPSIA
     Dosage: 2 DF, 2X/DAY
     Route: 048
     Dates: end: 20161016
  8. LEVACALM [Concomitant]
     Indication: HYPERTENSION
     Dosage: UNK
     Dates: start: 2005
  9. PACLITAXEL. [Suspect]
     Active Substance: PACLITAXEL
     Indication: OVARIAN CANCER
     Dosage: 222 MG, EVERY 3 WEEKS
     Route: 042
     Dates: start: 20161011, end: 20161011
  10. KETOROLAC TROMETHAMINE. [Concomitant]
     Active Substance: KETOROLAC TROMETHAMINE
     Indication: ANALGESIC THERAPY
     Dosage: 1 AMPLE, 1X/DAY
     Route: 042
     Dates: start: 20161013, end: 20161013
  11. TOUJEO [Concomitant]
     Active Substance: INSULIN GLARGINE
     Indication: BLOOD INSULIN
     Dosage: UNK
     Dates: start: 2005
  12. CARBOPLATIN. [Suspect]
     Active Substance: CARBOPLATIN
     Indication: OVARIAN CANCER
     Dosage: 900 MG, EVERY 3 WEEKS
     Route: 042
     Dates: start: 20161011, end: 20161011
  13. NO SUBJECT DRUG [Suspect]
     Active Substance: UNSPECIFIED INGREDIENT
     Indication: OVARIAN CANCER
     Dosage: NO DOSE GIVEN

REACTIONS (1)
  - Abdominal pain [Recovered/Resolved]

NARRATIVE: CASE EVENT DATE: 20161014
